FAERS Safety Report 4384021-3 (Version None)
Quarter: 2004Q2

REPORT INFORMATION
  Report Type: 
  Country: None (occurrence: None)
  Receive Date: 20040618
  Receipt Date: 20040609
  Transmission Date: 20050107
  Serious: Yes (Death, Hospitalization)
  Sender: FDA-Public Use
  Company Number: A-CH2003-03194

PATIENT
  Age: 78 Year
  Sex: Female

DRUGS (4)
  1. TRACLEER [Suspect]
     Indication: PULMONARY HYPERTENSION
     Dosage: 62.5MG, BID, ORAL
     Route: 048
     Dates: start: 20030318, end: 20030425
  2. DIURETICS [Concomitant]
  3. WARFARIN SODIUM [Concomitant]
  4. OXYGEN (OXYGEN) [Concomitant]

REACTIONS (6)
  - DISEASE PROGRESSION [None]
  - DYSPNOEA EXACERBATED [None]
  - GENERAL PHYSICAL HEALTH DETERIORATION [None]
  - HYPERTENSION [None]
  - PNEUMONIA [None]
  - RENAL FAILURE ACUTE [None]
